FAERS Safety Report 16971395 (Version 7)
Quarter: 2020Q1

REPORT INFORMATION
  Report Type: Report from Study
  Country: US (occurrence: US)
  Receive Date: 20191029
  Receipt Date: 20200131
  Transmission Date: 20200409
  Serious: Yes (Hospitalization)
  Sender: FDA-Public Use
  Company Number: US-REGENERON PHARMACEUTICALS, INC.-2019-62545

PATIENT

DRUGS (24)
  1. VITAMIN B COMPLEX                  /00056201/ [Concomitant]
     Indication: PROPHYLAXIS
     Dosage: 1 DF, QD
     Route: 048
     Dates: start: 20180222
  2. PHAZYME                            /06269601/ [Concomitant]
     Indication: PRODUCT USED FOR UNKNOWN INDICATION
     Dosage: 10 MG, PRN
     Route: 048
     Dates: start: 20180907, end: 20191026
  3. LACTAID [Concomitant]
     Active Substance: LACTASE
     Indication: PROPHYLAXIS
     Dosage: 9000 UNIT
     Route: 048
  4. DIPHENHYDRAMINE. [Concomitant]
     Active Substance: DIPHENHYDRAMINE
     Indication: PRODUCT USED FOR UNKNOWN INDICATION
     Dosage: 50 MG, QD
     Route: 048
     Dates: start: 20190814
  5. DIPHENHYDRAMINE. [Concomitant]
     Active Substance: DIPHENHYDRAMINE
     Dosage: 50 MG, QD
     Route: 048
     Dates: start: 20190925
  6. CEMIPLIMAB [Suspect]
     Active Substance: CEMIPLIMAB
     Indication: OESOPHAGEAL ADENOCARCINOMA STAGE III
     Dosage: 350 MG, Q3W
     Route: 042
     Dates: start: 20190814, end: 20190814
  7. OXYCODONE [Concomitant]
     Active Substance: OXYCODONE
     Dosage: 5 MG, PRN
     Route: 048
     Dates: start: 20190711
  8. SAR439459 [Suspect]
     Active Substance: SAR-439459
     Indication: OESOPHAGEAL ADENOCARCINOMA STAGE III
     Dosage: 22.5 MG/KG, QOW
     Route: 042
     Dates: start: 20190814, end: 20190814
  9. FLONASE [Concomitant]
     Active Substance: FLUTICASONE PROPIONATE
     Indication: PRODUCT USED FOR UNKNOWN INDICATION
     Dosage: 50 UG, QD
     Route: 045
     Dates: start: 20190222, end: 20191026
  10. SARNA (CAMPHOR (NATURAL)\MENTHOL) [Concomitant]
     Active Substance: CAMPHOR (NATURAL)\MENTHOL
     Indication: ADVERSE EVENT
     Dosage: 1 APPLICATION UNIT, QD
     Route: 061
     Dates: start: 20190821
  11. BACILLUS COAGULANS W/INULIN [Concomitant]
     Indication: PROPHYLAXIS
     Dosage: 250 MG, QD
     Route: 048
  12. VITAMIN D3 [Concomitant]
     Active Substance: CHOLECALCIFEROL
     Indication: PROPHYLAXIS
     Dosage: 1000 UNIT, QD
     Route: 048
     Dates: start: 20180907
  13. SUDAFED [Concomitant]
     Active Substance: PSEUDOEPHEDRINE HYDROCHLORIDE
     Indication: PRODUCT USED FOR UNKNOWN INDICATION
     Dosage: 5 MG, QD
     Route: 048
     Dates: start: 20190819
  14. CEPHAXIL [Concomitant]
     Indication: ADVERSE EVENT
     Dosage: 1 APPLICATION UNIT, QD
     Route: 061
     Dates: start: 20190904
  15. TRIAMCINOLONE ACETONIDE. [Concomitant]
     Active Substance: TRIAMCINOLONE ACETONIDE
     Indication: ADVERSE EVENT
     Dosage: 1 APPLICATION UNIT, QD
     Route: 061
     Dates: start: 20190911, end: 20191106
  16. SAR439459 [Suspect]
     Active Substance: SAR-439459
     Dosage: 22.5 MG/KG, QOW, FROM 12:08 TO 12:38
     Route: 042
     Dates: start: 20191016, end: 20191016
  17. CEMIPLIMAB [Suspect]
     Active Substance: CEMIPLIMAB
     Dosage: 350 MG, Q3W, FROM 12:46 TO 13:16
     Route: 042
     Dates: start: 20191016, end: 20191016
  18. DIPHENHYDRAMINE. [Concomitant]
     Active Substance: DIPHENHYDRAMINE
     Dosage: 50 MG, QD
     Route: 048
     Dates: start: 20190904
  19. DIPHENHYDRAMINE. [Concomitant]
     Active Substance: DIPHENHYDRAMINE
     Dosage: 50 MG, QD
     Route: 048
     Dates: start: 20191016
  20. COLACE [Concomitant]
     Active Substance: DOCUSATE SODIUM
     Indication: PRODUCT USED FOR UNKNOWN INDICATION
     Dosage: 200 MG, QD
     Route: 048
     Dates: start: 20190328
  21. PRILOSEC [Concomitant]
     Active Substance: OMEPRAZOLE MAGNESIUM
     Indication: PRODUCT USED FOR UNKNOWN INDICATION
     Dosage: 40 MG, QD
     Route: 048
     Dates: start: 20130130
  22. TYLENOL [Concomitant]
     Active Substance: ACETAMINOPHEN
     Indication: PRODUCT USED FOR UNKNOWN INDICATION
     Dosage: 325 MG, QD
     Route: 048
     Dates: start: 20160726
  23. EPINEPHRINE. [Concomitant]
     Active Substance: EPINEPHRINE
     Indication: PRODUCT USED FOR UNKNOWN INDICATION
     Dosage: 0.3 MG/0.3 ML, PRN
     Route: 030
     Dates: start: 20110718
  24. OXYCODONE [Concomitant]
     Active Substance: OXYCODONE
     Indication: PRODUCT USED FOR UNKNOWN INDICATION
     Dosage: 60 MG, PRN
     Route: 048
     Dates: start: 20190327

REACTIONS (3)
  - Cholecystitis [Not Recovered/Not Resolved]
  - Procedural pain [Not Recovered/Not Resolved]
  - Adrenal insufficiency [Not Recovered/Not Resolved]

NARRATIVE: CASE EVENT DATE: 20191021
